FAERS Safety Report 5551643-3 (Version None)
Quarter: 2007Q4

REPORT INFORMATION
  Report Type: 
  Country: None (occurrence: None)
  Receive Date: 20071212
  Receipt Date: 20071129
  Transmission Date: 20080405
  Serious: Yes (Hospitalization)
  Sender: FDA-Public Use
  Company Number: CA-ELI_LILLY_AND_COMPANY-CA200711007030

PATIENT
  Age: 56 Year
  Sex: Female

DRUGS (7)
  1. FORTEO [Suspect]
     Indication: OSTEOPOROSIS
     Dosage: 20 UG, DAILY (1/D)
     Route: 058
     Dates: start: 20070814
  2. APO-TRIAZIDE [Concomitant]
  3. REACTINE [Concomitant]
  4. COSOPT [Concomitant]
  5. ALPHAGAN [Concomitant]
  6. CALCIUM [Concomitant]
  7. VITAMIN D [Concomitant]

REACTIONS (3)
  - CATARACT [None]
  - EYE INFLAMMATION [None]
  - LIVER DISORDER [None]
